FAERS Safety Report 10601723 (Version 1)
Quarter: 2014Q4

REPORT INFORMATION
  Report Type: Spontaneous
  Country: US (occurrence: US)
  Receive Date: 20141124
  Receipt Date: 20141124
  Transmission Date: 20150529
  Serious: Yes (Death, Hospitalization, Other)
  Sender: FDA-Public Use
  Company Number: US-SA-2014SA160302

PATIENT
  Age: 66 Year
  Sex: Male

DRUGS (12)
  1. FLUOROURACIL. [Suspect]
     Active Substance: FLUOROURACIL
     Indication: PANCREATIC CARCINOMA STAGE IV
     Route: 065
  2. IRINOTECAN [Suspect]
     Active Substance: IRINOTECAN
     Indication: PANCREATIC CARCINOMA STAGE IV
     Dosage: 2 CYCLE
     Route: 065
  3. FLUOROURACIL. [Suspect]
     Active Substance: FLUOROURACIL
     Indication: PANCREATIC CARCINOMA STAGE IV
     Dosage: 2 CYCLE
     Route: 065
  4. LEUCOVORIN [Suspect]
     Active Substance: LEUCOVORIN
     Indication: PANCREATIC CARCINOMA STAGE IV
     Dosage: 2 CYCLE
     Route: 065
  5. OXALIPLATIN. [Suspect]
     Active Substance: OXALIPLATIN
     Indication: PANCREATIC CARCINOMA STAGE IV
     Route: 065
  6. IRINOTECAN [Suspect]
     Active Substance: IRINOTECAN
     Indication: PANCREATIC CARCINOMA STAGE IV
     Route: 065
  7. SIMVASTATIN. [Concomitant]
     Active Substance: SIMVASTATIN
  8. LEUCOVORIN [Suspect]
     Active Substance: LEUCOVORIN
     Indication: PANCREATIC CARCINOMA STAGE IV
     Route: 065
  9. FLECAINIDE [Concomitant]
     Active Substance: FLECAINIDE
  10. OXALIPLATIN. [Suspect]
     Active Substance: OXALIPLATIN
     Indication: PANCREATIC CARCINOMA STAGE IV
     Dosage: 2 CYCLE
     Route: 065
  11. IBUPROFEN. [Concomitant]
     Active Substance: IBUPROFEN
  12. METOPROLOL TARTRATE. [Concomitant]
     Active Substance: METOPROLOL TARTRATE

REACTIONS (14)
  - Streptococcal infection [Fatal]
  - Brain abscess [Fatal]
  - Seizure [Fatal]
  - Neutropenia [Recovered/Resolved]
  - Confusional state [Fatal]
  - Abscess bacterial [Fatal]
  - Splenic infarction [Fatal]
  - Pyrexia [Fatal]
  - Liver abscess [Fatal]
  - Hemianopia homonymous [Fatal]
  - Vasogenic cerebral oedema [Fatal]
  - Central nervous system lesion [Fatal]
  - Aphasia [Fatal]
  - Gastrointestinal toxicity [Unknown]
